FAERS Safety Report 8610083-0 (Version None)
Quarter: 2012Q3

REPORT INFORMATION
  Report Type: 
  Country: None (occurrence: None)
  Receive Date: 20120822
  Receipt Date: 20120820
  Transmission Date: 20120928
  Serious: Yes (Hospitalization)
  Sender: FDA-Public Use
  Company Number: US-BIOGENIDEC-2012BI032111

PATIENT
  Sex: Male

DRUGS (2)
  1. TYSABRI [Suspect]
     Indication: MULTIPLE SCLEROSIS
     Route: 042
     Dates: start: 20110502
  2. AVONEX [Concomitant]
     Indication: MULTIPLE SCLEROSIS
     Route: 030
     Dates: start: 20000804

REACTIONS (7)
  - TREMOR [None]
  - SPEECH DISORDER [None]
  - MEMORY IMPAIRMENT [None]
  - INFUSION RELATED REACTION [None]
  - VOMITING [None]
  - PERSONALITY CHANGE [None]
  - MONOCLONAL GAMMOPATHY [None]
